FAERS Safety Report 24591609 (Version 8)
Quarter: 2025Q3

REPORT INFORMATION
  Report Type: Report from Study
  Country: EU (occurrence: EU)
  Receive Date: 20241108
  Receipt Date: 20250903
  Transmission Date: 20251021
  Serious: Yes (Life-Threatening, Hospitalization)
  Sender: BIOGEN
  Company Number: EU-BIOGEN-2024BI01289503

PATIENT
  Age: 20 Year
  Sex: Male
  Weight: 60.2 kg

DRUGS (3)
  1. OMAVELOXOLONE [Suspect]
     Active Substance: OMAVELOXOLONE
     Indication: Friedreich^s ataxia
     Dosage: 150MG ONCE PER DAY (3 CAPSULES OF 50MG),  12 MONTHS
     Route: 050
     Dates: start: 20240830, end: 20241031
  2. OMAVELOXOLONE [Suspect]
     Active Substance: OMAVELOXOLONE
     Route: 050
     Dates: start: 202406, end: 20241031
  3. IDEBENONE [Concomitant]
     Active Substance: IDEBENONE
     Indication: Product used for unknown indication
     Route: 050
     Dates: start: 20230417

REACTIONS (2)
  - Ischaemic stroke [Recovered/Resolved]
  - Influenza [Unknown]

NARRATIVE: CASE EVENT DATE: 20241030
